FAERS Safety Report 23862059 (Version 1)
Quarter: 2024Q2

REPORT INFORMATION
  Report Type: Spontaneous
  Country: US (occurrence: None)
  Receive Date: 20240515
  Receipt Date: 20240515
  Transmission Date: 20240716
  Serious: Yes (Hospitalization)
  Sender: FDA-Public Use
  Company Number: None

PATIENT
  Age: 60 Year
  Sex: Female
  Weight: 61.1 kg

DRUGS (10)
  1. EMPAGLIFLOZIN [Suspect]
     Active Substance: EMPAGLIFLOZIN
     Indication: Pancreatitis acute
     Dosage: FREQUENCY : DAILY;?
     Route: 048
     Dates: start: 20240318, end: 20240510
  2. DULAGLUTIDE [Suspect]
     Active Substance: DULAGLUTIDE
  3. TIRZEPATIDE [Suspect]
     Active Substance: TIRZEPATIDE
  4. SITAGLIPTIN [Suspect]
     Active Substance: SITAGLIPTIN
  5. ALBUTEROL SULFATE [Concomitant]
     Active Substance: ALBUTEROL SULFATE
  6. AMPHETAMINE SULFATE\DEXTROAMPHETAMINE [Concomitant]
     Active Substance: AMPHETAMINE SULFATE\DEXTROAMPHETAMINE
  7. GLIPIZIDE [Concomitant]
     Active Substance: GLIPIZIDE
  8. METFORMIN [Concomitant]
  9. MONTELUKAST [Concomitant]
     Active Substance: MONTELUKAST SODIUM
  10. ROSUVASTATIN [Concomitant]

REACTIONS (2)
  - Pancreatitis [None]
  - Diabetic ketoacidosis [None]

NARRATIVE: CASE EVENT DATE: 20240510
